FAERS Safety Report 4977710-0 (Version None)
Quarter: 2006Q1

REPORT INFORMATION
  Report Type: 
  Country: None (occurrence: None)
  Receive Date: 20060215
  Receipt Date: 20050428
  Transmission Date: 20060701
  Serious: Yes (Other)
  Sender: FDA-Public Use
  Company Number: MC200500397

PATIENT

DRUGS (1)
  1. ANGIOMAX [Suspect]

REACTIONS (1)
  - STENT OCCLUSION [None]
